FAERS Safety Report 25786908 (Version 1)
Quarter: 2025Q3

REPORT INFORMATION
  Report Type: Spontaneous
  Country: US (occurrence: US)
  Receive Date: 20250910
  Receipt Date: 20250910
  Transmission Date: 20251020
  Serious: Yes (Other)
  Sender: ANI
  Company Number: US-ANIPHARMA-2025-US-013521

PATIENT
  Age: 36 Year
  Sex: Female

DRUGS (3)
  1. CORTICOTROPIN [Suspect]
     Active Substance: CORTICOTROPIN
     Indication: Psoriatic arthropathy
     Route: 058
     Dates: start: 202412
  2. CORLANOR [Concomitant]
     Active Substance: IVABRADINE HYDROCHLORIDE
  3. IRON [Concomitant]
     Active Substance: IRON

REACTIONS (3)
  - Pain [Unknown]
  - Kidney infection [Unknown]
  - Product dose omission issue [Recovered/Resolved]

NARRATIVE: CASE EVENT DATE: 20250317
